FAERS Safety Report 9889649 (Version 3)
Quarter: 2014Q1

REPORT INFORMATION
  Report Type: Spontaneous
  Country: MX (occurrence: MX)
  Receive Date: 20140211
  Receipt Date: 20140224
  Transmission Date: 20141002
  Serious: Yes (Other)
  Sender: FDA-Public Use
  Company Number: MX-009507513-1312MEX012433

PATIENT
  Age: 62 Year
  Sex: Male

DRUGS (5)
  1. JANUVIA [Suspect]
     Indication: DIABETES MELLITUS
     Dosage: DAILY
     Route: 048
     Dates: start: 20131225
  2. LASIX (FUROSEMIDE) [Concomitant]
     Indication: BLOOD SODIUM INCREASED
     Dosage: 40MG DAILY
     Route: 048
  3. LASIX (FUROSEMIDE) [Concomitant]
     Indication: BLOOD POTASSIUM INCREASED
     Dosage: 20MG DAILY
     Route: 048
  4. RIVOTRIL [Concomitant]
     Indication: ANXIETY
     Dosage: 2MG DAILY
     Route: 048
  5. BRIMONIDINE TARTRATE [Concomitant]
     Indication: GLAUCOMA
     Dosage: UNK
     Route: 047

REACTIONS (6)
  - Loss of consciousness [Unknown]
  - Dysphonia [Not Recovered/Not Resolved]
  - Pollakiuria [Unknown]
  - Fatigue [Unknown]
  - Hypoglycaemia [Unknown]
  - Drug ineffective [Unknown]
